FAERS Safety Report 13666885 (Version 1)
Quarter: 2017Q2

REPORT INFORMATION
  Report Type: Spontaneous
  Country: US (occurrence: US)
  Receive Date: 20170619
  Receipt Date: 20170619
  Transmission Date: 20170830
  Serious: No
  Sender: FDA-Public Use
  Company Number: US-ROCHE-763773

PATIENT
  Age: 57 Year
  Sex: Male
  Weight: 141 kg

DRUGS (14)
  1. LISINOPRIL VS HCTZ [Concomitant]
     Dosage: DRUG: LISINOPRIL/HCTZ
     Route: 065
  2. TERAZOSIN [Concomitant]
     Active Substance: TERAZOSIN\TERAZOSIN HYDROCHLORIDE
     Route: 065
  3. FLUCONAZOLE. [Concomitant]
     Active Substance: FLUCONAZOLE
     Route: 065
  4. ATRIPLA [Concomitant]
     Active Substance: EFAVIRENZ\EMTRICITABINE\TENOFOVIR DISOPROXIL FUMARATE
     Route: 065
  5. PROCTOFOAM [Concomitant]
     Active Substance: PRAMOXINE HYDROCHLORIDE
     Dosage: DRUG: PROCTO-FOAM
     Route: 065
  6. ASPIRIN. [Concomitant]
     Active Substance: ASPIRIN
     Route: 065
  7. XELODA [Suspect]
     Active Substance: CAPECITABINE
     Indication: COLORECTAL CANCER METASTATIC
     Dosage: 2500 MG QAM AND 2000 MG QPM FOR 14 DAYS. TAKEN OFF FOR 1.5 MONTHS
     Route: 048
  8. XELODA [Suspect]
     Active Substance: CAPECITABINE
     Route: 048
  9. BACTRIM [Concomitant]
     Active Substance: SULFAMETHOXAZOLE\TRIMETHOPRIM
     Route: 065
  10. CITALOPRAM [Concomitant]
     Active Substance: CITALOPRAM HYDROBROMIDE
     Route: 065
  11. METFORMIN [Concomitant]
     Active Substance: METFORMIN HYDROCHLORIDE
     Route: 065
  12. SIMVASTATIN. [Concomitant]
     Active Substance: SIMVASTATIN
     Route: 065
  13. LEVOTHROID [Concomitant]
     Active Substance: LEVOTHYROXINE SODIUM
     Route: 065
  14. NYSTATIN. [Concomitant]
     Active Substance: NYSTATIN
     Dosage: DRUG: NYSTANTIN
     Route: 065

REACTIONS (2)
  - Surgery [Unknown]
  - Balanoposthitis [Unknown]

NARRATIVE: CASE EVENT DATE: 201010
